FAERS Safety Report 21599759 (Version 1)
Quarter: 2022Q4

REPORT INFORMATION
  Report Type: Spontaneous
  Country: US (occurrence: None)
  Receive Date: 20221115
  Receipt Date: 20221115
  Transmission Date: 20230113
  Serious: No
  Sender: FDA-Public Use
  Company Number: None

PATIENT
  Age: 65 Year
  Sex: Female
  Weight: 49.9 kg

DRUGS (1)
  1. RASUVO [Suspect]
     Active Substance: METHOTREXATE SODIUM
     Indication: Rheumatoid arthritis
     Dosage: INJECT 12.5MG  (0.25ML) SUBCUTANEOUSLY ONCE A WEEK  ON THE SAME DAY EACH WEEK AS DIRECTED
     Route: 058
     Dates: start: 202108

REACTIONS (1)
  - Bone graft [None]
